FAERS Safety Report 23105313 (Version 1)
Quarter: 2023Q4

REPORT INFORMATION
  Report Type: Spontaneous
  Country: US (occurrence: None)
  Receive Date: 20231025
  Receipt Date: 20231025
  Transmission Date: 20240109
  Serious: Yes (Other)
  Sender: FDA-Public Use
  Company Number: 2023A236332

PATIENT

DRUGS (1)
  1. SYMBICORT [Suspect]
     Active Substance: BUDESONIDE\FORMOTEROL FUMARATE DIHYDRATE
     Dosage: UNKNOWN UNKNOWN
     Route: 055

REACTIONS (9)
  - Nocardiosis [Unknown]
  - Fatigue [Unknown]
  - Hypersensitivity [Unknown]
  - Hypersensitivity [Unknown]
  - Asthma [Unknown]
  - Parosmia [Unknown]
  - Headache [Unknown]
  - Adverse reaction [Unknown]
  - Drug delivery system malfunction [Unknown]
